FAERS Safety Report 9003973 (Version 1)
Quarter: 2013Q1

REPORT INFORMATION
  Report Type: Spontaneous
  Country: US (occurrence: US)
  Receive Date: 20130109
  Receipt Date: 20130109
  Transmission Date: 20140127
  Serious: No
  Sender: FDA-Public Use
  Company Number: US-009507513-1301USA001460

PATIENT
  Sex: Female

DRUGS (3)
  1. CLARITIN REDITABS [Suspect]
     Indication: SNEEZING
     Dosage: 10 MG, ONCE
     Route: 048
  2. CLARITIN REDITABS [Suspect]
     Indication: LACRIMATION INCREASED
  3. CLARITIN REDITABS [Suspect]
     Indication: RHINORRHOEA

REACTIONS (1)
  - Drug ineffective [Unknown]
